FAERS Safety Report 5514766-0 (Version None)
Quarter: 2007Q4

REPORT INFORMATION
  Report Type: 
  Country: None (occurrence: None)
  Receive Date: 20071113
  Receipt Date: 20071101
  Transmission Date: 20080405
  Serious: Yes (Other)
  Sender: FDA-Public Use
  Company Number: IT-GENENTECH-250707

PATIENT
  Age: 45 Year
  Sex: Male

DRUGS (4)
  1. XOLAIR [Suspect]
     Indication: ASTHMA
     Dates: start: 20061101
  2. BETA BLOCKING AGENTS [Concomitant]
     Indication: ASTHMA
  3. GLUCOCORTICOID NOS [Concomitant]
     Indication: ASTHMA
  4. ORAL STEROIDS [Concomitant]
     Indication: ASTHMA

REACTIONS (1)
  - ALLERGIC GRANULOMATOUS ANGIITIS [None]
